FAERS Safety Report 18297033 (Version 1)
Quarter: 2020Q3

REPORT INFORMATION
  Report Type: Spontaneous
  Country: US (occurrence: US)
  Receive Date: 20200922
  Receipt Date: 20200922
  Transmission Date: 20201103
  Serious: No
  Sender: FDA-Public Use
  Company Number: US-MYLANLABS-2020M1076298

PATIENT
  Sex: Male
  Weight: 79 kg

DRUGS (1)
  1. EPINEPHRINE INJECTION USP AUTO?INJECTOR [Suspect]
     Active Substance: EPINEPHRINE
     Indication: ALLERGY TO ARTHROPOD STING
     Dosage: AS NEEDED
     Route: 042

REACTIONS (2)
  - Liquid product physical issue [Not Recovered/Not Resolved]
  - Off label use [Not Recovered/Not Resolved]
